FAERS Safety Report 9871440 (Version 1)
Quarter: 2014Q1

REPORT INFORMATION
  Report Type: Spontaneous
  Country: JP (occurrence: JP)
  Receive Date: 20140205
  Receipt Date: 20140205
  Transmission Date: 20141002
  Serious: Yes (Death, Hospitalization, Other)
  Sender: FDA-Public Use
  Company Number: PHHY2014JP012558

PATIENT
  Age: 56 Year
  Sex: Female
  Weight: 39 kg

DRUGS (4)
  1. 5-FLUOROURACIL [Suspect]
     Indication: OESOPHAGEAL SQUAMOUS CELL CARCINOMA
  2. CISPLATIN [Suspect]
     Indication: OESOPHAGEAL SQUAMOUS CELL CARCINOMA
  3. DOCETAXEL [Suspect]
     Indication: OESOPHAGEAL CARCINOMA
  4. NEDAPLATIN [Suspect]
     Indication: OESOPHAGEAL CARCINOMA

REACTIONS (13)
  - Oesophageal squamous cell carcinoma [Fatal]
  - Malignant neoplasm progression [Fatal]
  - Fistula [Unknown]
  - Purulent pericarditis [Unknown]
  - Abdominal pain upper [Recovered/Resolved]
  - Pyrexia [Recovered/Resolved]
  - Hypotension [Unknown]
  - Pericardial rub [Unknown]
  - Sinus tachycardia [Unknown]
  - Pericardial effusion [Unknown]
  - Oesophageal stenosis [Unknown]
  - Oesophageal squamous cell carcinoma recurrent [Unknown]
  - Electrocardiogram ST segment elevation [Unknown]
